FAERS Safety Report 6275918-8 (Version None)
Quarter: 2009Q3

REPORT INFORMATION
  Report Type: 
  Country: None (occurrence: None)
  Receive Date: 20090720
  Receipt Date: 20090715
  Transmission Date: 20100115
  Serious: Yes (Other)
  Sender: FDA-Public Use
  Company Number: 1000007517

PATIENT
  Age: 42 Year
  Sex: Female

DRUGS (4)
  1. SAVELLA [Suspect]
     Indication: FIBROMYALGIA
     Dosage: 12.5 MG (12.5 MG, IN 1 D), ORAL
     Route: 048
     Dates: start: 20090520, end: 20090520
  2. VIVELLE (TRANSDERMAL) [Concomitant]
  3. ALLEGRA [Concomitant]
  4. CYMBALTA [Concomitant]

REACTIONS (5)
  - CARDIAC FAILURE CONGESTIVE [None]
  - DYSPNOEA [None]
  - HYPERHIDROSIS [None]
  - PLEURAL EFFUSION [None]
  - PULMONARY OEDEMA [None]
